FAERS Safety Report 24939756 (Version 1)
Quarter: 2025Q1

REPORT INFORMATION
  Report Type: Spontaneous
  Country: FR (occurrence: FR)
  Receive Date: 20250207
  Receipt Date: 20250207
  Transmission Date: 20250408
  Serious: Yes (Other)
  Sender: TEVA
  Company Number: None

PATIENT
  Age: 67 Year
  Sex: Male

DRUGS (2)
  1. METFORMIN [Suspect]
     Active Substance: METFORMIN HYDROCHLORIDE
     Indication: Type 2 diabetes mellitus
     Route: 048
     Dates: start: 20240621, end: 20240624
  2. LANSOPRAZOLE [Concomitant]
     Active Substance: LANSOPRAZOLE
     Indication: Product used for unknown indication

REACTIONS (1)
  - Hepatic cytolysis [Recovered/Resolved]

NARRATIVE: CASE EVENT DATE: 20240701
